FAERS Safety Report 10656481 (Version 5)
Quarter: 2015Q2

REPORT INFORMATION
  Report Type: Report from Study
  Country: US (occurrence: US)
  Receive Date: 20141216
  Receipt Date: 20150413
  Transmission Date: 20150821
  Serious: Yes (Death, Hospitalization, Other)
  Sender: FDA-Public Use
  Company Number: US-ACTELION-A-US2014-109795

PATIENT
  Age: 79 Year
  Sex: Male

DRUGS (5)
  1. CIALIS [Concomitant]
     Active Substance: TADALAFIL
  2. VENTAVIS [Suspect]
     Active Substance: ILOPROST
     Indication: PULMONARY ARTERIAL HYPERTENSION
     Dosage: 5 MCG, 6-9X DAILY
     Route: 055
     Dates: start: 20140926, end: 20150407
  3. ASPIRIN. [Concomitant]
     Active Substance: ASPIRIN
  4. OPSUMIT [Suspect]
     Active Substance: MACITENTAN
     Indication: PULMONARY ARTERIAL HYPERTENSION
     Dosage: 10 MG, QD
     Route: 048
     Dates: start: 20141016
  5. VENTAVIS [Suspect]
     Active Substance: ILOPROST
     Dosage: 5 MCG, 2-3X DAILY
     Route: 055
     Dates: start: 20140926

REACTIONS (11)
  - Condition aggravated [Unknown]
  - Disease progression [Fatal]
  - Chemotherapy [Unknown]
  - Cerebrovascular accident [Unknown]
  - Confusional state [Unknown]
  - Drug administration error [Unknown]
  - Lung neoplasm malignant [Unknown]
  - Oxygen saturation decreased [Unknown]
  - Amnesia [Unknown]
  - Bedridden [Unknown]
  - Cough [Unknown]
